FAERS Safety Report 20923649 (Version 1)
Quarter: 2022Q2

REPORT INFORMATION
  Report Type: Spontaneous
  Country: IT (occurrence: IT)
  Receive Date: 20220607
  Receipt Date: 20220607
  Transmission Date: 20220720
  Serious: Yes (Other)
  Sender: FDA-Public Use
  Company Number: None

PATIENT
  Age: 36 Year
  Sex: Male

DRUGS (1)
  1. AMOXICILLIN [Suspect]
     Active Substance: AMOXICILLIN
     Indication: Hyperpyrexia
     Dosage: UNK
     Route: 065

REACTIONS (3)
  - Band sensation [Recovering/Resolving]
  - Urticaria [Recovering/Resolving]
  - Macroglossia [Recovering/Resolving]

NARRATIVE: CASE EVENT DATE: 20220527
